FAERS Safety Report 10087743 (Version 2)
Quarter: 2014Q2

REPORT INFORMATION
  Report Type: Spontaneous
  Country: US (occurrence: US)
  Receive Date: 20140418
  Receipt Date: 20140418
  Transmission Date: 20141212
  Serious: Yes (Other)
  Sender: FDA-Public Use
  Company Number: US-NAPPMUNDI-USA-2014-0110558

PATIENT
  Sex: Male

DRUGS (3)
  1. OXYCONTIN (NDA 22-272) [Suspect]
     Indication: DRUG ABUSE
     Route: 048
  2. PERCOCET                           /00867901/ [Suspect]
     Indication: DRUG ABUSE
     Route: 048
  3. HEROIN [Suspect]
     Indication: SUBSTANCE ABUSE

REACTIONS (1)
  - Substance abuse [Recovering/Resolving]
